FAERS Safety Report 4513127-0 (Version None)
Quarter: 2004Q4

REPORT INFORMATION
  Report Type: 
  Country: None (occurrence: None)
  Receive Date: 20041130
  Receipt Date: 20041118
  Transmission Date: 20050328
  Serious: Yes (Life-Threatening, Other)
  Sender: FDA-Public Use
  Company Number: JP-BRISTOL-MYERS SQUIBB COMPANY-12775599

PATIENT
  Age: 44 Year
  Sex: Female

DRUGS (7)
  1. GATIFLO TABS 100 MG [Suspect]
     Indication: PYELONEPHRITIS
     Route: 048
     Dates: start: 20041110, end: 20041111
  2. DASEN [Concomitant]
     Route: 048
     Dates: start: 20041110, end: 20041113
  3. PL GRANULES [Concomitant]
     Indication: NASOPHARYNGITIS
     Route: 048
     Dates: start: 20041110, end: 20041111
  4. CALONAL [Concomitant]
     Route: 048
     Dates: start: 20041110
  5. SELBEX [Concomitant]
     Route: 048
     Dates: start: 20041112, end: 20041113
  6. CLARITH [Concomitant]
     Indication: PYELONEPHRITIS
     Dates: start: 20041112, end: 20041113
  7. BIOFERMIN [Concomitant]
     Route: 048
     Dates: start: 20041110, end: 20041113

REACTIONS (3)
  - HEPATIC ENCEPHALOPATHY [None]
  - HEPATITIS FULMINANT [None]
  - HYPOGLYCAEMIA [None]
